FAERS Safety Report 8160886-4 (Version None)
Quarter: 2012Q1

REPORT INFORMATION
  Report Type: 
  Country: None (occurrence: None)
  Receive Date: 20120223
  Receipt Date: 20120217
  Transmission Date: 20120608
  Serious: Yes (Hospitalization)
  Sender: FDA-Public Use
  Company Number: US-ASTRAZENECA-2011SE08940

PATIENT
  Age: 50 Year
  Sex: Male

DRUGS (6)
  1. SEROQUEL XR [Suspect]
     Route: 048
  2. SEROQUEL XR [Suspect]
     Indication: BIPOLAR DISORDER
     Route: 048
  3. DEPAKOTE [Concomitant]
  4. PREDNISONE [Concomitant]
  5. KLONOPIN [Concomitant]
  6. SEROQUEL XR [Suspect]
     Dosage: 300MG TWICEDAILY EVERY OTHER DAY AND ONCE DAILY EVERY OTHER DAY
     Route: 048

REACTIONS (3)
  - DRUG DOSE OMISSION [None]
  - SINUSITIS [None]
  - BACK PAIN [None]
